FAERS Safety Report 20219337 (Version 3)
Quarter: 2022Q1

REPORT INFORMATION
  Report Type: Spontaneous
  Country: FR (occurrence: FR)
  Receive Date: 20211222
  Receipt Date: 20220207
  Transmission Date: 20220424
  Serious: Yes (Hospitalization)
  Sender: FDA-Public Use
  Company Number: FR-ELI_LILLY_AND_COMPANY-FR202112009554

PATIENT
  Age: 37 Year
  Sex: Female
  Weight: 79 kg

DRUGS (9)
  1. EMGALITY [Suspect]
     Active Substance: GALCANEZUMAB-GNLM
     Indication: Hemiplegic migraine
     Dosage: 240 MG, SINGLE
     Route: 058
     Dates: start: 20210412, end: 20210412
  2. EMGALITY [Suspect]
     Active Substance: GALCANEZUMAB-GNLM
     Indication: Basilar migraine
     Dosage: 120 MG, MONTHLY (1/M)
     Route: 058
     Dates: start: 20210512, end: 20211212
  3. OXETORONE [Concomitant]
     Active Substance: OXETORONE
     Indication: Hemiplegic migraine
     Dosage: UNK, DAILY
     Dates: start: 2019
  4. VALPROATE SODIUM [Concomitant]
     Active Substance: VALPROATE SODIUM
     Indication: Hemiplegic migraine
     Dosage: UNK
     Dates: start: 2010
  5. CLOMIPRAMINE [Concomitant]
     Active Substance: CLOMIPRAMINE
     Indication: Hemiplegic migraine
     Dosage: UNK
     Dates: start: 2020
  6. NIMOTOP [Concomitant]
     Active Substance: NIMODIPINE
     Indication: Hemiplegic migraine
     Dosage: UNK
     Dates: start: 2019
  7. LEVOTHYROXINE [Concomitant]
     Active Substance: LEVOTHYROXINE
     Indication: Hypothyroidism
     Dosage: 75 MG, DAILY
     Dates: start: 2005
  8. FLUTICASONE FUROATE\VILANTEROL TRIFENATATE [Concomitant]
     Active Substance: FLUTICASONE FUROATE\VILANTEROL TRIFENATATE
     Indication: Asthma
     Dosage: UNK
     Dates: start: 2020
  9. IPRATROPIUM BROMIDE\FENOTEROL HYDROBROMIDE [Concomitant]
     Active Substance: FENOTEROL HYDROBROMIDE\IPRATROPIUM BROMIDE
     Indication: Asthma
     Dosage: UNK
     Dates: start: 2019

REACTIONS (6)
  - Paraesthesia [Recovered/Resolved]
  - Quadriplegia [Recovered/Resolved with Sequelae]
  - Hemiplegia [Recovered/Resolved]
  - Headache [Not Recovered/Not Resolved]
  - Dyskinesia [Unknown]
  - Injection site urticaria [Recovered/Resolved]

NARRATIVE: CASE EVENT DATE: 20211212
